FAERS Safety Report 12837200 (Version 1)
Quarter: 2016Q4

REPORT INFORMATION
  Report Type: Spontaneous
  Country: US (occurrence: US)
  Receive Date: 20161008
  Receipt Date: 20161008
  Transmission Date: 20170207
  Serious: No
  Sender: FDA-Public Use
  Company Number: None

PATIENT
  Age: 19 Year
  Sex: Female
  Weight: 72 kg

DRUGS (3)
  1. DEPO-PROVERA [Suspect]
     Active Substance: MEDROXYPROGESTERONE ACETATE
     Indication: CONTRACEPTION
     Dosage: OTHER OTHER INTRAMUSCULAR 1 INJECTION EVERY 3 MONTHS
     Route: 030
  2. DEPO-PROVERA [Suspect]
     Active Substance: MEDROXYPROGESTERONE ACETATE
     Indication: MENSTRUAL DISORDER
     Dosage: OTHER OTHER INTRAMUSCULAR 1 INJECTION EVERY 3 MONTHS
     Route: 030
  3. TYLENOL [Concomitant]
     Active Substance: ACETAMINOPHEN

REACTIONS (6)
  - Mood swings [None]
  - Insomnia [None]
  - Fatigue [None]
  - Hormone level abnormal [None]
  - Back pain [None]
  - Dizziness [None]

NARRATIVE: CASE EVENT DATE: 20160809
